FAERS Safety Report 6310538-8 (Version None)
Quarter: 2009Q3

REPORT INFORMATION
  Report Type: 
  Country: None (occurrence: None)
  Receive Date: 20090811
  Receipt Date: 20090520
  Transmission Date: 20100115
  Serious: No
  Sender: FDA-Public Use
  Company Number: 1000006374

PATIENT
  Age: 58 Year
  Sex: Female

DRUGS (9)
  1. SAVELLA [Suspect]
     Indication: FIBROMYALGIA
     Dosage: 12.5 MG (12.5 MG, 1 IN 1 D), ORAL; 25 MG (12.5 MG, 2 IN 1 D), ORAL
     Route: 048
     Dates: start: 20090515, end: 20090515
  2. SAVELLA [Suspect]
     Indication: FIBROMYALGIA
     Dosage: 12.5 MG (12.5 MG, 1 IN 1 D), ORAL; 25 MG (12.5 MG, 2 IN 1 D), ORAL
     Route: 048
     Dates: start: 20090516, end: 20090517
  3. SAVELLA [Suspect]
     Indication: FIBROMYALGIA
     Dosage: 50 MG (25 MG, 2 IN 1 D), ORAL
     Route: 048
     Dates: start: 20090518, end: 20090519
  4. LISINOPRIL [Concomitant]
  5. BYSTOLIC [Concomitant]
  6. GABAPENTIN [Concomitant]
  7. LIMBREL [Concomitant]
  8. PREVACID [Concomitant]
  9. INSULIN [Concomitant]

REACTIONS (3)
  - NAUSEA [None]
  - PYREXIA [None]
  - VOMITING [None]
